FAERS Safety Report 8519544-6 (Version None)
Quarter: 2012Q3

REPORT INFORMATION
  Report Type: 
  Country: None (occurrence: None)
  Receive Date: 20120718
  Receipt Date: 20120712
  Transmission Date: 20120928
  Serious: Yes (Hospitalization)
  Sender: FDA-Public Use
  Company Number: US-GILEAD-2012-0055316

PATIENT
  Sex: Female

DRUGS (3)
  1. LETAIRIS [Suspect]
     Indication: PULMONARY HYPERTENSION
     Dosage: 10 MG, UNK
     Route: 048
     Dates: start: 20100927
  2. LETAIRIS [Suspect]
     Indication: SLEEP APNOEA SYNDROME
  3. REVATIO [Concomitant]

REACTIONS (4)
  - SYNCOPE [None]
  - CATHETERISATION CARDIAC [None]
  - LUNG DISORDER [None]
  - CARDIAC FAILURE [None]
